FAERS Safety Report 21688795 (Version 2)
Quarter: 2023Q1

REPORT INFORMATION
  Report Type: Report from Study
  Country: US (occurrence: US)
  Receive Date: 20221206
  Receipt Date: 20230328
  Transmission Date: 20230418
  Serious: No
  Sender: FDA-Public Use
  Company Number: US-ABBVIE-4217721

PATIENT
  Age: 61 Year
  Sex: Male
  Weight: 85.275 kg

DRUGS (9)
  1. HUMIRA [Suspect]
     Active Substance: ADALIMUMAB
     Indication: Crohn^s disease
     Dosage: CITRATE FREE,?FORM STRENGTH: 40 MILLIGRAM
     Route: 058
     Dates: start: 20220529
  2. PANTOPRAZOLE [Concomitant]
     Active Substance: PANTOPRAZOLE
     Indication: Gastrooesophageal reflux disease
     Dosage: FORM STRENGTH: 20 MILLIGRAM
     Route: 048
  3. MODERNA COVID-19 VACCINE [Concomitant]
     Active Substance: ELASOMERAN
     Indication: COVID-19 immunisation
     Dosage: 1ST DOSE ?ONE IN ONCE
     Route: 030
     Dates: start: 20211027, end: 20211027
  4. MODERNA COVID-19 VACCINE [Concomitant]
     Active Substance: ELASOMERAN
     Indication: COVID-19 immunisation
     Dosage: 2ND DOSE?ONE IN ONCE
     Route: 030
     Dates: start: 20220329, end: 20220329
  5. MODERNA COVID-19 VACCINE [Concomitant]
     Active Substance: ELASOMERAN
     Indication: COVID-19 immunisation
     Dosage: BOOSTER 3RD DOSE ?ONE IN ONCE
     Dates: start: 20220930, end: 20220930
  6. ATORVASTATIN [Concomitant]
     Active Substance: ATORVASTATIN
     Indication: Hepatitis C
     Dosage: FORM STRENGTH: 20 MILLIGRAM
     Route: 048
  7. VENLAFAXINE [Concomitant]
     Active Substance: VENLAFAXINE HYDROCHLORIDE
     Indication: Depression
     Dosage: FORM STRENGTH: 150 MILLIGRAM
     Route: 048
     Dates: start: 2015
  8. AZATHIOPRINE [Concomitant]
     Active Substance: AZATHIOPRINE
     Indication: Multiple drug therapy
     Route: 048
     Dates: start: 2015
  9. LISINOPRIL [Concomitant]
     Active Substance: LISINOPRIL
     Indication: Hypertension
     Dosage: FORM STRENGTH: 20 MILLIGRAM
     Route: 048

REACTIONS (7)
  - Influenza like illness [Recovered/Resolved]
  - Chills [Unknown]
  - Vomiting [Unknown]
  - Abdominal discomfort [Unknown]
  - Abdominal distension [Unknown]
  - Hyperhidrosis [Unknown]
  - Diarrhoea [Unknown]

NARRATIVE: CASE EVENT DATE: 20221114
